FAERS Safety Report 6085989-X (Version None)
Quarter: 2009Q1

REPORT INFORMATION
  Report Type: 
  Country: None (occurrence: None)
  Receive Date: 20090217
  Receipt Date: 20080430
  Transmission Date: 20090719
  Serious: Yes (Hospitalization)
  Sender: FDA-Public Use
  Company Number: MC200800194

PATIENT
  Age: 80 Year
  Sex: Female
  Weight: 65.8 kg

DRUGS (5)
  1. ANGIOMAX [Suspect]
     Indication: PERCUTANEOUS CORONARY INTERVENTION
     Dosage: 0.75 MG/KG, BOLUS, INTRAVENOUS; 1.75 MG/KR, HR, INTRAVENOUS
     Route: 040
     Dates: start: 20080417, end: 20080417
  2. ANGIOMAX [Suspect]
     Indication: PERCUTANEOUS CORONARY INTERVENTION
     Dosage: 0.75 MG/KG, BOLUS, INTRAVENOUS; 1.75 MG/KR, HR, INTRAVENOUS
     Route: 040
     Dates: start: 20080417, end: 20080417
  3. WARFARIN SODIUM [Concomitant]
  4. PLAVIX [Concomitant]
  5. . [Concomitant]

REACTIONS (5)
  - ABDOMINAL PAIN [None]
  - BLOOD PRESSURE DECREASED [None]
  - INTERNATIONAL NORMALISED RATIO INCREASED [None]
  - PUNCTURE SITE HAEMORRHAGE [None]
  - VESSEL PUNCTURE SITE HAEMATOMA [None]
